FAERS Safety Report 4519775-6 (Version None)
Quarter: 2004Q4

REPORT INFORMATION
  Report Type: 
  Country: None (occurrence: None)
  Receive Date: 20041203
  Receipt Date: 20041203
  Transmission Date: 20050328
  Serious: Yes (Other)
  Sender: FDA-Public Use
  Company Number: None

PATIENT
  Age: 59 Year
  Sex: Female
  Weight: 72.5755 kg

DRUGS (1)
  1. SINGULAIR [Suspect]
     Indication: RHINITIS
     Dosage: ONCE DAILY  BY MOUTH
     Route: 048
     Dates: start: 20030721, end: 20041025

REACTIONS (9)
  - ABDOMINAL PAIN UPPER [None]
  - CONTUSION [None]
  - DIARRHOEA [None]
  - DIZZINESS [None]
  - DRUG TOXICITY [None]
  - FATIGUE [None]
  - HEADACHE [None]
  - INSOMNIA [None]
  - MALAISE [None]
